FAERS Safety Report 9000748 (Version 1)
Quarter: 2013Q1

REPORT INFORMATION
  Report Type: Spontaneous
  Country: US (occurrence: US)
  Receive Date: 20130107
  Receipt Date: 20130107
  Transmission Date: 20140127
  Serious: Yes (Life-Threatening, Hospitalization)
  Sender: FDA-Public Use
  Company Number: US-ROXANE LABORATORIES, INC.-2013-RO-00011RO

PATIENT
  Age: 4 Year
  Sex: Female

DRUGS (12)
  1. DEXAMETHASONE [Suspect]
     Indication: ACUTE LYMPHOCYTIC LEUKAEMIA
     Dosage: 7.5 MG
     Route: 048
     Dates: start: 20121001, end: 20121007
  2. DASATINIB [Suspect]
     Indication: ACUTE LYMPHOCYTIC LEUKAEMIA
  3. VINCRISTINE SULFATE [Suspect]
     Indication: ACUTE LYMPHOCYTIC LEUKAEMIA
     Dosage: 1.1 MG
     Route: 042
     Dates: start: 20121008, end: 20121030
  4. PEGASPARGASE [Suspect]
     Indication: ACUTE LYMPHOCYTIC LEUKAEMIA
     Route: 042
     Dates: start: 20121008, end: 20121008
  5. METHOTREXATE [Suspect]
     Indication: ACUTE LYMPHOCYTIC LEUKAEMIA
     Dosage: 12 MG
     Dates: start: 20121001
  6. DOXORUBICIN [Suspect]
     Indication: ACUTE LYMPHOCYTIC LEUKAEMIA
     Dosage: 19 MG
     Route: 042
     Dates: start: 20121008
  7. CYCLOPHOSPHAMIDE [Suspect]
     Indication: ACUTE LYMPHOCYTIC LEUKAEMIA
     Dosage: 720 MG
     Route: 042
     Dates: start: 20121114, end: 20121114
  8. CYTARABINE [Suspect]
     Indication: ACUTE LYMPHOCYTIC LEUKAEMIA
     Dosage: 54 MG
     Route: 042
     Dates: start: 20121116, end: 20121119
  9. THIOGUANINE [Suspect]
     Indication: ACUTE LYMPHOCYTIC LEUKAEMIA
     Dosage: 40 MG
     Route: 048
     Dates: start: 20121114, end: 20121119
  10. THIOGUANINE [Suspect]
     Dosage: 60 MG
     Route: 048
     Dates: start: 20121120, end: 20121120
  11. THIOGUANINE [Suspect]
     Dosage: 60 MG
     Route: 048
     Dates: start: 20121127, end: 20121127
  12. THIOGUANINE [Suspect]
     Dosage: 40 MG
     Route: 048
     Dates: start: 20121121, end: 20121126

REACTIONS (5)
  - Infusion related reaction [Recovered/Resolved]
  - Febrile neutropenia [Recovered/Resolved]
  - Urinary tract infection [Recovered/Resolved]
  - Headache [Recovered/Resolved]
  - Cough [Recovered/Resolved]
